FAERS Safety Report 23801362 (Version 6)
Quarter: 2024Q4

REPORT INFORMATION
  Report Type: Report from Study
  Country: US (occurrence: US)
  Receive Date: 20240430
  Receipt Date: 20241019
  Transmission Date: 20250115
  Serious: No
  Sender: SANOFI AVENTIS
  Company Number: US-SA-SAC20240429000476

PATIENT
  Age: 9 Year
  Sex: Male

DRUGS (14)
  1. EFTRENONACOG ALFA [Suspect]
     Active Substance: EFTRENONACOG ALFA
     Indication: Haemorrhage prophylaxis
     Dosage: 2800 U, QW
     Route: 042
  2. EFTRENONACOG ALFA [Suspect]
     Active Substance: EFTRENONACOG ALFA
     Indication: Haemorrhage prophylaxis
     Dosage: 2800 U, QW
     Route: 042
  3. EFTRENONACOG ALFA [Suspect]
     Active Substance: EFTRENONACOG ALFA
     Dosage: 2800 U, PRN
     Route: 042
  4. EFTRENONACOG ALFA [Suspect]
     Active Substance: EFTRENONACOG ALFA
     Dosage: 2800 U, PRN
     Route: 042
  5. EFTRENONACOG ALFA [Suspect]
     Active Substance: EFTRENONACOG ALFA
     Dosage: 2900 U,(+/-10%) QW (FOR PROPHYLAXIS)
     Route: 042
  6. EFTRENONACOG ALFA [Suspect]
     Active Substance: EFTRENONACOG ALFA
     Dosage: 2900 U,(+/-10%) QW (FOR PROPHYLAXIS)
     Route: 042
  7. EFTRENONACOG ALFA [Suspect]
     Active Substance: EFTRENONACOG ALFA
     Dosage: 2900 U,(+/-10%) QW (FOR PROPHYLAXIS)
     Route: 042
  8. EFTRENONACOG ALFA [Suspect]
     Active Substance: EFTRENONACOG ALFA
     Dosage: 2900 U,(+/-10%) QW (FOR PROPHYLAXIS)
     Route: 042
  9. EFTRENONACOG ALFA [Suspect]
     Active Substance: EFTRENONACOG ALFA
     Dosage: 2814 U
     Route: 042
  10. EFTRENONACOG ALFA [Suspect]
     Active Substance: EFTRENONACOG ALFA
     Dosage: 2814 U
     Route: 042
  11. EFTRENONACOG ALFA [Suspect]
     Active Substance: EFTRENONACOG ALFA
     Dosage: 2000 U
     Route: 042
  12. EFTRENONACOG ALFA [Suspect]
     Active Substance: EFTRENONACOG ALFA
     Dosage: 2000 U
     Route: 042
  13. EFTRENONACOG ALFA [Suspect]
     Active Substance: EFTRENONACOG ALFA
     Dosage: 2800 U, QW
     Route: 042
  14. EFTRENONACOG ALFA [Suspect]
     Active Substance: EFTRENONACOG ALFA
     Dosage: 2800 U, QW
     Route: 042

REACTIONS (8)
  - Head injury [Unknown]
  - Traumatic haemorrhage [Unknown]
  - Tooth socket haemorrhage [Recovered/Resolved]
  - Gingival bleeding [Unknown]
  - Tooth loss [Unknown]
  - Illness [Unknown]
  - Mouth haemorrhage [Not Recovered/Not Resolved]
  - Extra dose administered [Unknown]

NARRATIVE: CASE EVENT DATE: 20240404
